FAERS Safety Report 9499590 (Version 1)
Quarter: 2013Q3

REPORT INFORMATION
  Report Type: Spontaneous
  Country: US (occurrence: None)
  Receive Date: 20130903
  Receipt Date: 20130903
  Transmission Date: 20140515
  Serious: No
  Sender: FDA-Public Use
  Company Number: None

PATIENT
  Age: 43 Year
  Sex: Female

DRUGS (1)
  1. ENBREL SURECLICK 50MG AMGEN INC [Suspect]
     Indication: PSORIASIS
     Dosage: 50MG  ONCE A WEEK  SUBCUTANEOUSLY
     Route: 058
     Dates: start: 20130702, end: 20130808

REACTIONS (3)
  - Rash generalised [None]
  - Fatigue [None]
  - Arthralgia [None]
